FAERS Safety Report 8698305 (Version 5)
Quarter: 2013Q2

REPORT INFORMATION
  Report Type: Report from Study
  Country: NZ (occurrence: NZ)
  Receive Date: 20120802
  Receipt Date: 20130514
  Transmission Date: 20140414
  Serious: Yes (Death)
  Sender: FDA-Public Use
  Company Number: PHHY2012NZ065829

PATIENT
  Age: 79 Year
  Sex: Male

DRUGS (2)
  1. CLOZARIL [Suspect]
     Indication: DELIRIUM
     Dosage: UNK
     Route: 048
     Dates: start: 20120725
  2. CLOZARIL [Suspect]
     Dosage: 12.5 MG
     Route: 048
     Dates: start: 20120727, end: 20120730

REACTIONS (2)
  - Death [Fatal]
  - Apathy [Unknown]
